FAERS Safety Report 16749335 (Version 4)
Quarter: 2020Q3

REPORT INFORMATION
  Report Type: Report from Study
  Country: CA (occurrence: CA)
  Receive Date: 20190828
  Receipt Date: 20200803
  Transmission Date: 20201102
  Serious: Yes (Hospitalization, Other)
  Sender: FDA-Public Use
  Company Number: CA-BRISTOL-MYERS SQUIBB COMPANY-BMS-2019-081136

PATIENT
  Age: 71 Year
  Sex: Female

DRUGS (1)
  1. ABATACEPT [Suspect]
     Active Substance: ABATACEPT
     Indication: RHEUMATOID ARTHRITIS
     Dosage: 750 MILLIGRAM, Q4WK
     Route: 042
     Dates: start: 20190719

REACTIONS (6)
  - Diarrhoea [Unknown]
  - Insomnia [Unknown]
  - Stoma site erythema [Unknown]
  - Hernia [Unknown]
  - Pain [Unknown]
  - Cellulitis [Unknown]

NARRATIVE: CASE EVENT DATE: 20190726
